FAERS Safety Report 24604654 (Version 4)
Quarter: 2025Q2

REPORT INFORMATION
  Report Type: Report from Study
  Country: CA (occurrence: CA)
  Receive Date: 20241111
  Receipt Date: 20250609
  Transmission Date: 20250717
  Serious: Yes (Other)
  Sender: TAKEDA
  Company Number: CA-TAKEDA-2024TUS112021

PATIENT
  Age: 51 Year
  Sex: Female

DRUGS (7)
  1. VEDOLIZUMAB [Suspect]
     Active Substance: VEDOLIZUMAB
     Indication: Colitis ulcerative
  2. VEDOLIZUMAB [Suspect]
     Active Substance: VEDOLIZUMAB
  3. VEDOLIZUMAB [Suspect]
     Active Substance: VEDOLIZUMAB
     Dosage: 300 MILLIGRAM, Q4WEEKS
     Dates: start: 20250403
  4. VEDOLIZUMAB [Suspect]
     Active Substance: VEDOLIZUMAB
     Dosage: 300 MILLIGRAM, Q4WEEKS
  5. AVSOLA [Concomitant]
     Active Substance: INFLIXIMAB-AXXQ
     Dosage: 1600 MILLIGRAM, TID
     Dates: start: 202012
  6. FENTANYL [Concomitant]
     Active Substance: FENTANYL
  7. MIDAZOLAM [Concomitant]
     Active Substance: MIDAZOLAM

REACTIONS (5)
  - Haematochezia [Unknown]
  - Colitis ulcerative [Unknown]
  - Frequent bowel movements [Unknown]
  - Large intestine polyp [Unknown]
  - Off label use [Unknown]

NARRATIVE: CASE EVENT DATE: 20250403
